FAERS Safety Report 21061374 (Version 2)
Quarter: 2022Q3

REPORT INFORMATION
  Report Type: Spontaneous
  Country: US (occurrence: US)
  Receive Date: 20220709
  Receipt Date: 20220926
  Transmission Date: 20221026
  Serious: No
  Sender: FDA-Public Use
  Company Number: US-BRISTOL-MYERS SQUIBB COMPANY-2022-058418

PATIENT
  Age: 56 Year
  Sex: Female

DRUGS (2)
  1. SPRYCEL [Suspect]
     Active Substance: DASATINIB
     Indication: Chronic myeloid leukaemia
     Dosage: DOSE: 50MG/100MG?TAKE 1 TABLET BY MOUTH EVERY OTHER DAY ALTERNATING WITH 2 TABLETS EVERY OTHER DAY A
     Route: 048
     Dates: start: 20220111
  2. SPRYCEL [Suspect]
     Active Substance: DASATINIB
     Dosage: FREQUENCY: EVERY OTHER DAY
     Route: 048
     Dates: start: 20220111

REACTIONS (2)
  - Vomiting [Unknown]
  - Headache [Unknown]
